FAERS Safety Report 4436358-7 (Version None)
Quarter: 2004Q2

REPORT INFORMATION
  Report Type: 
  Country: None (occurrence: None)
  Receive Date: 20040628
  Receipt Date: 20031217
  Transmission Date: 20050107
  Serious: Yes (Hospitalization)
  Sender: FDA-Public Use
  Company Number: 203760

PATIENT
  Age: 78 Year
  Sex: Female
  Weight: 46.3 kg

DRUGS (4)
  1. RITUXAN [Suspect]
     Indication: NON-HODGKIN'S LYMPHOMA
     Dosage: X4, INTRAVENOUS; 500 MG, 1/WEEK, INTRAVENOUS
     Route: 042
     Dates: start: 20020101, end: 20020101
  2. RITUXAN [Suspect]
     Indication: NON-HODGKIN'S LYMPHOMA
     Dosage: X4, INTRAVENOUS; 500 MG, 1/WEEK, INTRAVENOUS
     Route: 042
     Dates: start: 20031201, end: 20031208
  3. ACETAMINOPHEN [Concomitant]
  4. DIPHENHYDRAMINE (DIPHENHYDRAMINE NOS) [Concomitant]

REACTIONS (1)
  - SERUM SICKNESS [None]
